FAERS Safety Report 5381667-0 (Version None)
Quarter: 2007Q2

REPORT INFORMATION
  Report Type: 
  Country: None (occurrence: None)
  Receive Date: 20070629
  Receipt Date: 20060810
  Transmission Date: 20071010
  Serious: Yes (Other)
  Sender: FDA-Public Use
  Company Number: 2006099218

PATIENT
  Age: 53 Year
  Sex: Male

DRUGS (7)
  1. ZOLOFT [Suspect]
     Indication: DEPRESSION
     Dosage: ORAL
     Route: 048
  2. PEG-INTRON [Suspect]
     Indication: HEPATITIS C
     Dosage: SUBCUTANEOUS
     Route: 058
     Dates: start: 20060217
  3. RIBAVIRIN [Suspect]
     Indication: HEPATITIS C
     Dosage: ORAL
     Route: 048
     Dates: start: 20060217
  4. LORATADINE [Concomitant]
  5. RANITIDINE [Concomitant]
  6. TRAMADOL HCL [Concomitant]
  7. VERAPAMIL [Concomitant]

REACTIONS (6)
  - DYSGEUSIA [None]
  - HOMICIDAL IDEATION [None]
  - INJECTION SITE REACTION [None]
  - PHYSICAL ASSAULT [None]
  - RED BLOOD CELL COUNT DECREASED [None]
  - SLUGGISHNESS [None]
